FAERS Safety Report 16890786 (Version 3)
Quarter: 2019Q4

REPORT INFORMATION
  Report Type: Spontaneous
  Country: US (occurrence: US)
  Receive Date: 20191007
  Receipt Date: 20191114
  Transmission Date: 20200122
  Serious: Yes (Hospitalization, Other)
  Sender: FDA-Public Use
  Company Number: US-PFIZER INC-2019426478

PATIENT
  Age: 61 Year
  Sex: Male

DRUGS (3)
  1. INLYTA [Suspect]
     Active Substance: AXITINIB
     Dosage: 3 MG, 2X/DAY (TAKE 3 TABLETS TWICE A DAY)
     Route: 048
     Dates: start: 201909, end: 2019
  2. INLYTA [Suspect]
     Active Substance: AXITINIB
     Dosage: 3 MG, UNK
     Dates: start: 2019, end: 2019
  3. INLYTA [Suspect]
     Active Substance: AXITINIB
     Indication: RENAL CANCER
     Dosage: 5 MG, 2X/DAY(TAKE 1 TABLET TWICE A DAY)
     Route: 048
     Dates: start: 20190919, end: 2019

REACTIONS (14)
  - Haemorrhoids [Unknown]
  - Weight decreased [Unknown]
  - Cholecystitis infective [Unknown]
  - Nasal dryness [Unknown]
  - Musculoskeletal pain [Unknown]
  - Rhinorrhoea [Unknown]
  - Back pain [Unknown]
  - Decreased appetite [Unknown]
  - Neuropathy peripheral [Unknown]
  - Gastrointestinal infection [Unknown]
  - Diarrhoea [Unknown]
  - Dysgeusia [Unknown]
  - Swollen tongue [Unknown]
  - Scab [Unknown]

NARRATIVE: CASE EVENT DATE: 2019
